FAERS Safety Report 15370076 (Version 2)
Quarter: 2018Q3

REPORT INFORMATION
  Report Type: Spontaneous
  Country: FR (occurrence: FR)
  Receive Date: 20180911
  Receipt Date: 20180911
  Transmission Date: 20181010
  Serious: Yes (Other)
  Sender: FDA-Public Use
  Company Number: PHHY2018FR088738

PATIENT
  Age: 16 Year
  Sex: Female

DRUGS (3)
  1. TRETINOIN. [Suspect]
     Active Substance: TRETINOIN
     Indication: CASTLEMAN^S DISEASE
     Dosage: 30 MG TWICE DAILY FOR 5 MONTHS; STARTED AT DAY 26
     Route: 065
  2. PREDNISOLONE. [Suspect]
     Active Substance: PREDNISOLONE
     Dosage: 0.25 MG/KG/DAY; AFTER 6 MONTHS OF 1 MG/KG DOSAGE; STOPPED AT 30 MONTHS
     Route: 048
  3. PREDNISOLONE. [Suspect]
     Active Substance: PREDNISOLONE
     Indication: CASTLEMAN^S DISEASE
     Dosage: 1 MG/KG/DAY; START AT DAY 26
     Route: 048

REACTIONS (5)
  - Pulmonary embolism [Unknown]
  - Intracranial pressure increased [Unknown]
  - Hyperkalaemia [Unknown]
  - Device related infection [Unknown]
  - Product use in unapproved indication [Recovered/Resolved]
